FAERS Safety Report 20529361 (Version 1)
Quarter: 2022Q1

REPORT INFORMATION
  Report Type: Report from Study
  Country: US (occurrence: US)
  Receive Date: 20220228
  Receipt Date: 20220228
  Transmission Date: 20220423
  Serious: Yes (Other)
  Sender: FDA-Public Use
  Company Number: US-ABBVIE-22K-163-4292662-00

PATIENT
  Sex: Male

DRUGS (3)
  1. IMBRUVICA [Suspect]
     Active Substance: IBRUTINIB
     Indication: Product used for unknown indication
     Route: 048
  2. IMBRUVICA [Suspect]
     Active Substance: IBRUTINIB
     Route: 048
  3. IMBRUVICA [Suspect]
     Active Substance: IBRUTINIB
     Route: 048

REACTIONS (6)
  - Urinary tract obstruction [Not Recovered/Not Resolved]
  - Haemorrhage urinary tract [Not Recovered/Not Resolved]
  - Skin discolouration [Not Recovered/Not Resolved]
  - Erythema [Not Recovered/Not Resolved]
  - Contusion [Not Recovered/Not Resolved]
  - Urinary tract infection [Not Recovered/Not Resolved]
